FAERS Safety Report 21270620 (Version 3)
Quarter: 2023Q2

REPORT INFORMATION
  Report Type: Spontaneous
  Country: US (occurrence: US)
  Receive Date: 20220830
  Receipt Date: 20230414
  Transmission Date: 20230722
  Serious: No
  Sender: FDA-Public Use
  Company Number: US-BIOVITRUM-2022US10115

PATIENT
  Age: 52 Year
  Sex: Male

DRUGS (2)
  1. KINERET [Suspect]
     Active Substance: ANAKINRA
     Indication: Still^s disease
     Dosage: FREQUENCY: DAILY
     Route: 058
     Dates: start: 202208
  2. KINERET [Suspect]
     Active Substance: ANAKINRA
     Indication: Illness

REACTIONS (3)
  - Pain [Unknown]
  - Off label use [Unknown]
  - Product dose omission issue [Unknown]

NARRATIVE: CASE EVENT DATE: 20220801
